FAERS Safety Report 8001557-4 (Version None)
Quarter: 2011Q4

REPORT INFORMATION
  Report Type: 
  Country: None (occurrence: None)
  Receive Date: 20111222
  Receipt Date: 20111220
  Transmission Date: 20120403
  Serious: Yes (Hospitalization)
  Sender: FDA-Public Use
  Company Number: FR-PFIZER INC-2011302796

PATIENT
  Age: 74 Year
  Sex: Female

DRUGS (8)
  1. PIPERACILLIN AND TAZOBACTAM [Suspect]
     Indication: PYELOCALIECTASIS
     Dosage: UNK
     Route: 042
     Dates: start: 20111013, end: 20111016
  2. POTASSIUM CHLORIDE [Concomitant]
  3. ROCEPHIN [Suspect]
     Indication: URINARY TRACT INFECTION
     Dosage: UNK
     Dates: start: 20110911
  4. NEXIUM [Concomitant]
  5. XANAX [Concomitant]
  6. OXYCONTIN [Suspect]
     Indication: SCIATICA
     Dosage: UNK
     Dates: start: 20111013
  7. ROCEPHIN [Suspect]
     Dosage: UNK
     Dates: start: 20111016, end: 20111026
  8. VFEND [Concomitant]

REACTIONS (4)
  - PRURITUS [None]
  - ERYTHEMA [None]
  - BURNING SENSATION [None]
  - RASH [None]
